FAERS Safety Report 9732962 (Version 1)
Quarter: 2013Q4

REPORT INFORMATION
  Report Type: Spontaneous
  Country: TR (occurrence: TR)
  Receive Date: 20131205
  Receipt Date: 20131205
  Transmission Date: 20140711
  Serious: Yes (Other)
  Sender: FDA-Public Use
  Company Number: TR-PFIZER INC-2013343970

PATIENT
  Age: 6 Year
  Sex: Female

DRUGS (4)
  1. GENOTROPIN GOQUICK [Suspect]
     Indication: GROWTH HORMONE DEFICIENCY
     Dosage: 0.5 MG, 1X/DAY
     Dates: start: 20131126
  2. LUMINALETTEN [Concomitant]
     Dosage: 22.5 MG, 2X/DAY
  3. GAVISCON [Concomitant]
     Dosage: UNK
  4. EUTHYROX [Concomitant]
     Dosage: 150 (UNKNOWN UNIT) 2 TABLET IN A DAY

REACTIONS (1)
  - Convulsion [Unknown]
